FAERS Safety Report 9200919 (Version 2)
Quarter: 2013Q3

REPORT INFORMATION
  Report Type: Spontaneous
  Country: GB (occurrence: GB)
  Receive Date: 20130401
  Receipt Date: 20130805
  Transmission Date: 20140515
  Serious: Yes (Hospitalization)
  Sender: FDA-Public Use
  Company Number: GB-JNJFOC-20130316436

PATIENT
  Age: 63 Year
  Sex: Male

DRUGS (5)
  1. SIMPONI [Suspect]
     Indication: PRODUCT USED FOR UNKNOWN INDICATION
     Route: 058
     Dates: start: 201202
  2. FOLIC ACID [Concomitant]
     Route: 065
  3. METHOTREXATE [Concomitant]
     Route: 065
  4. NAPROXEN [Concomitant]
     Route: 065
  5. LEVOTHYROXINE [Concomitant]
     Route: 065

REACTIONS (1)
  - Deep vein thrombosis [Recovered/Resolved]
